FAERS Safety Report 7246337-2 (Version None)
Quarter: 2011Q1

REPORT INFORMATION
  Report Type: 
  Country: None (occurrence: None)
  Receive Date: 20110126
  Receipt Date: 20110117
  Transmission Date: 20110831
  Serious: Yes (Hospitalization)
  Sender: FDA-Public Use
  Company Number: DE-AMGEN-DEUSP2011002665

PATIENT
  Age: 82 Year
  Sex: Female
  Weight: 55.1 kg

DRUGS (9)
  1. BEZAFIBRAT [Concomitant]
     Dosage: 200 MG, QD
  2. TRAMADOLOR ID [Concomitant]
     Dosage: UNK UNK, QD
  3. DEKRISTOL [Concomitant]
     Dosage: 20000 IU, UNK
  4. VISKEN [Concomitant]
     Dosage: 5 MG, BID
  5. ASS-RATIOPHARM [Concomitant]
  6. INSIDON [Concomitant]
     Dosage: 100 MG, QD
  7. PANTOPRAZOL                        /01263202/ [Concomitant]
     Dosage: 40 MG, QD
  8. PROLIA [Suspect]
     Indication: OSTEOPOROSIS
     Dosage: 60 MG, ONE TIME DOSE
     Route: 058
     Dates: start: 20100823
  9. RAMIPRIL [Concomitant]
     Dosage: 5 MG, BID

REACTIONS (7)
  - HEADACHE [None]
  - DIZZINESS [None]
  - NAUSEA [None]
  - DISORIENTATION [None]
  - WEIGHT DECREASED [None]
  - TRANSIENT ISCHAEMIC ATTACK [None]
  - DECREASED APPETITE [None]
